FAERS Safety Report 4360987-2 (Version None)
Quarter: 2004Q2

REPORT INFORMATION
  Report Type: 
  Country: None (occurrence: None)
  Receive Date: 20040517
  Receipt Date: 20040507
  Transmission Date: 20050107
  Serious: Yes (Hospitalization)
  Sender: FDA-Public Use
  Company Number: 2004PK00826

PATIENT
  Age: 50 Year
  Sex: Male

DRUGS (2)
  1. PROPOFOL [Suspect]
     Indication: ANAESTHESIA
     Dosage: 250 MG DAILY IV
     Route: 042
  2. PROPOFOL [Suspect]
     Indication: ENDOSCOPY UPPER GASTROINTESTINAL TRACT
     Dosage: 250 MG DAILY IV
     Route: 042

REACTIONS (2)
  - ANAESTHETIC COMPLICATION [None]
  - ANTEROGRADE AMNESIA [None]
